FAERS Safety Report 25735904 (Version 1)
Quarter: 2025Q3

REPORT INFORMATION
  Report Type: Spontaneous
  Country: US (occurrence: US)
  Receive Date: 20250828
  Receipt Date: 20250828
  Transmission Date: 20251021
  Serious: No
  Sender: Kenvue
  Company Number: US-KENVUE-20250710574

PATIENT
  Age: 69 Year
  Sex: Male

DRUGS (2)
  1. MENS ROGAINE EXTRA STRENGTH [Suspect]
     Active Substance: MINOXIDIL
     Indication: Dry skin
     Dosage: 1 MILLILITER, TWICE A DAY
     Route: 065
     Dates: start: 20250721
  2. CORTISONE [Concomitant]
     Active Substance: CORTISONE
     Indication: Dry skin
     Route: 065

REACTIONS (5)
  - Application site rash [Not Recovered/Not Resolved]
  - Application site erythema [Not Recovered/Not Resolved]
  - Application site pruritus [Not Recovered/Not Resolved]
  - Contraindicated product administered [Unknown]
  - Product use in unapproved indication [Unknown]

NARRATIVE: CASE EVENT DATE: 20250721
